FAERS Safety Report 5863700-2 (Version None)
Quarter: 2008Q3

REPORT INFORMATION
  Report Type: 
  Country: None (occurrence: None)
  Receive Date: 20080828
  Receipt Date: 20080818
  Transmission Date: 20090109
  Serious: Yes (Hospitalization)
  Sender: FDA-Public Use
  Company Number: FR-PFIZER INC-2008070227

PATIENT
  Sex: Female

DRUGS (5)
  1. EPIRUBICIN HYDROCHLORIDE [Suspect]
     Indication: BREAST CANCER
     Route: 042
  2. CYCLOPHOSPHAMIDE [Concomitant]
  3. ZOPHREN [Concomitant]
  4. METHYLPREDNISOLONE 16MG TAB [Concomitant]
  5. FLUOROURACIL [Concomitant]

REACTIONS (2)
  - HEADACHE [None]
  - NASAL CONGESTION [None]
